FAERS Safety Report 9109060 (Version 4)
Quarter: 2013Q3

REPORT INFORMATION
  Report Type: Spontaneous
  Country: US (occurrence: US)
  Receive Date: 20130222
  Receipt Date: 20130724
  Transmission Date: 20140515
  Serious: Yes (Life-Threatening, Disabling)
  Sender: FDA-Public Use
  Company Number: US-GLAXOSMITHKLINE-A1012675A

PATIENT
  Age: 87 Year
  Sex: Female
  Weight: 48.6 kg

DRUGS (13)
  1. LAMOTRIGINE [Suspect]
     Indication: CONVULSION
     Dosage: 25MG SEE DOSAGE TEXT
     Route: 048
     Dates: start: 201111
  2. EVISTA [Suspect]
     Indication: OSTEOPOROSIS
  3. DEPAKOTE [Suspect]
     Indication: CONVULSION
     Dates: end: 201201
  4. CLONIDINE [Concomitant]
  5. BUSPIRONE [Concomitant]
  6. AMITRIPTYLINE [Concomitant]
  7. RANITIDINE [Concomitant]
  8. ASPIRIN [Concomitant]
  9. B-12 [Concomitant]
  10. FOLIC ACID [Concomitant]
  11. CALCIUM [Concomitant]
  12. VITAMIN D [Concomitant]
  13. VITAMIN D3 [Concomitant]

REACTIONS (23)
  - Convulsion [Unknown]
  - Diverticulitis [Unknown]
  - Gastrointestinal stenosis [Unknown]
  - Cerebral atrophy [Unknown]
  - Pruritus [Recovered/Resolved]
  - Abdominal discomfort [Unknown]
  - Decreased appetite [Unknown]
  - Sleep disorder [Unknown]
  - Hernia [Unknown]
  - Oxygen saturation decreased [Unknown]
  - Drug interaction [Unknown]
  - Iron deficiency [Unknown]
  - Fear of eating [Unknown]
  - Drug ineffective [Unknown]
  - Iron deficiency anaemia [Unknown]
  - Diverticulum intestinal [Unknown]
  - Dry mouth [Not Recovered/Not Resolved]
  - Lip oedema [Not Recovered/Not Resolved]
  - Lip pain [Not Recovered/Not Resolved]
  - Stomatitis [Unknown]
  - Angiopathy [Unknown]
  - Movement disorder [Unknown]
  - Nervous system disorder [Unknown]
